FAERS Safety Report 5389781-0 (Version None)
Quarter: 2007Q3

REPORT INFORMATION
  Report Type: 
  Country: None (occurrence: None)
  Receive Date: 20070717
  Receipt Date: 20070711
  Transmission Date: 20080115
  Serious: Yes (Hospitalization, Disabling, Other)
  Sender: FDA-Public Use
  Company Number: US-MERCK-0707USA01727

PATIENT
  Age: 62 Year
  Sex: Male

DRUGS (6)
  1. JANUVIA [Suspect]
     Indication: DIABETES MELLITUS
     Route: 048
     Dates: start: 20070611
  2. TENORMIN [Concomitant]
     Route: 065
  3. ZESTRIL [Concomitant]
     Route: 065
  4. ALDACTONE [Concomitant]
     Route: 065
  5. LASIX [Concomitant]
     Route: 065
  6. AVANDAMET [Concomitant]
     Route: 065
     Dates: end: 20070611

REACTIONS (4)
  - ABDOMINAL DISTENSION [None]
  - DYSPNOEA [None]
  - OEDEMA PERIPHERAL [None]
  - WEIGHT INCREASED [None]
